FAERS Safety Report 26202948 (Version 1)
Quarter: 2025Q4

REPORT INFORMATION
  Report Type: Spontaneous
  Country: EU (occurrence: EU)
  Receive Date: 20251226
  Receipt Date: 20251226
  Transmission Date: 20260118
  Serious: Yes (Death)
  Sender: TEVA
  Company Number: None

PATIENT
  Sex: Female

DRUGS (2)
  1. TRAMADOL HYDROCHLORIDE [Interacting]
     Active Substance: TRAMADOL HYDROCHLORIDE
     Indication: Pain
     Dosage: TRAMADOL HYDROCHLORIDE (2389CH)
     Route: 048
     Dates: start: 2021, end: 20251017
  2. FENTANYL [Interacting]
     Active Substance: FENTANYL
     Indication: Pain
     Dosage: FENTANYL (1543A)
     Route: 062
     Dates: start: 2021, end: 20251017

REACTIONS (1)
  - Large intestinal obstruction [Fatal]

NARRATIVE: CASE EVENT DATE: 20251017
